FAERS Safety Report 4733376-6 (Version None)
Quarter: 2005Q3

REPORT INFORMATION
  Report Type: 
  Country: None (occurrence: None)
  Receive Date: 20050725
  Receipt Date: 20040826
  Transmission Date: 20060218
  Serious: Yes (Other)
  Sender: FDA-Public Use
  Company Number: USA-2002-0003368

PATIENT
  Age: 40 Year
  Sex: Female

DRUGS (2)
  1. MS CONTIN [Suspect]
     Indication: PAIN
     Dosage: 1 UNK, TID, ORAL
     Route: 048
  2. LORTAB [Suspect]
     Indication: PAIN
     Dosage: 20 MG, QID, ORAL
     Route: 048

REACTIONS (2)
  - DRUG ABUSER [None]
  - DRUG DEPENDENCE [None]
